FAERS Safety Report 21529732 (Version 1)
Quarter: 2022Q4

REPORT INFORMATION
  Report Type: Spontaneous
  Country: IT (occurrence: IT)
  Receive Date: 20221031
  Receipt Date: 20221031
  Transmission Date: 20230113
  Serious: Yes (Other)
  Sender: FDA-Public Use
  Company Number: IT-PFIZER INC-202201091375

PATIENT
  Age: 64 Year
  Sex: Male

DRUGS (1)
  1. SUNITINIB [Suspect]
     Active Substance: SUNITINIB
     Indication: Neoplasm
     Dosage: CONTINUOUS DAILY DOSING
     Route: 065
     Dates: start: 20211201, end: 20220530

REACTIONS (5)
  - Loss of personal independence in daily activities [Unknown]
  - Malaise [Unknown]
  - Leukopenia [Unknown]
  - Neutropenia [Unknown]
  - Asthenia [Recovering/Resolving]
